FAERS Safety Report 10080599 (Version 2)
Quarter: 2014Q3

REPORT INFORMATION
  Report Type: Spontaneous
  Country: US (occurrence: US)
  Receive Date: 20140416
  Receipt Date: 20140729
  Transmission Date: 20150326
  Serious: Yes (Hospitalization)
  Sender: FDA-Public Use
  Company Number: US-BAYER-2014-054023

PATIENT
  Age: 59 Year
  Sex: Male

DRUGS (1)
  1. XOFIGO [Suspect]
     Active Substance: RADIUM RA-223 DICHLORIDE
     Indication: PROSTATE CANCER
     Dosage: 144.3 ?CI
     Dates: start: 20140321

REACTIONS (4)
  - Dehydration [None]
  - Nausea [None]
  - Vomiting [None]
  - Helicobacter infection [None]
